FAERS Safety Report 6582415-9 (Version None)
Quarter: 2010Q1

REPORT INFORMATION
  Report Type: 
  Country: None (occurrence: None)
  Receive Date: 20100216
  Receipt Date: 20100203
  Transmission Date: 20100710
  Serious: Yes (Hospitalization)
  Sender: FDA-Public Use
  Company Number: US-SANOFI-AVENTIS-2010SA003494

PATIENT
  Sex: Female
  Weight: 97.5 kg

DRUGS (10)
  1. LOVENOX [Suspect]
     Route: 058
     Dates: start: 20070101
  2. PROCHLORPERAZINE [Concomitant]
     Indication: NAUSEA
  3. ALL OTHER THERAPEUTIC PRODUCTS [Concomitant]
     Indication: BLADDER DISORDER
  4. CELEXA [Concomitant]
     Indication: NERVOUSNESS
  5. CENTRUM SILVER [Concomitant]
     Dosage: 1 DAILY
  6. ALPRAZOLAM [Concomitant]
     Indication: ANXIETY
     Dosage: 2 X DAILY AS NEEDED
  7. CARVEDILOL [Concomitant]
     Indication: BLOOD PRESSURE ABNORMAL
  8. VITAMIN B-12 [Concomitant]
     Indication: ENERGY INCREASED
  9. CHOLESTYRAMINE [Concomitant]
     Dosage: 1 OF 9 OZ PKG
  10. MAGNESIUM [Concomitant]
     Dosage: 3 TABLET 2 X DAILY

REACTIONS (3)
  - GALLBLADDER DISORDER [None]
  - GASTROINTESTINAL DISORDER [None]
  - HYPOTENSION [None]
